FAERS Safety Report 7601664-1 (Version None)
Quarter: 2011Q3

REPORT INFORMATION
  Report Type: 
  Country: None (occurrence: None)
  Receive Date: 20110711
  Receipt Date: 20110705
  Transmission Date: 20111222
  Serious: Yes (Other)
  Sender: FDA-Public Use
  Company Number: PHHY2010US88857

PATIENT
  Sex: Female

DRUGS (8)
  1. WELLBUTRIN XL [Concomitant]
     Indication: DEPRESSION
     Dosage: 300 MG, UNK
     Route: 048
  2. LEVOTHYROXINE SODIUM [Concomitant]
     Indication: HYPOTHYROIDISM
     Dosage: 75 MG, QD
     Route: 048
  3. LAMICTAL [Concomitant]
     Indication: CONVULSION
     Dosage: 100 MG, BID
     Route: 048
  4. CYMBALTA [Concomitant]
     Indication: DEPRESSION
     Dosage: 30 MG, QD
     Route: 048
  5. GILENYA [Suspect]
     Dosage: 2 DOSE OF O.5 MG
     Route: 048
     Dates: start: 20110416
  6. ADDERALL 10 [Concomitant]
     Indication: FATIGUE
     Dosage: 20 MG, QD
     Route: 048
  7. GILENYA [Suspect]
     Indication: MULTIPLE SCLEROSIS
     Dosage: 0.5 MG, QD
     Route: 048
     Dates: start: 20101216
  8. KLONOPIN [Concomitant]
     Dosage: 7 MG, QHS
     Route: 048

REACTIONS (8)
  - MUSCULAR WEAKNESS [None]
  - BALANCE DISORDER [None]
  - VISION BLURRED [None]
  - DIPLOPIA [None]
  - FALL [None]
  - MULTIPLE SCLEROSIS RELAPSE [None]
  - VISUAL ACUITY REDUCED [None]
  - ACCIDENTAL OVERDOSE [None]
